FAERS Safety Report 4416331-5 (Version None)
Quarter: 2004Q3

REPORT INFORMATION
  Report Type: 
  Country: None (occurrence: None)
  Receive Date: 20040804
  Receipt Date: 20040804
  Transmission Date: 20050211
  Serious: Yes (Hospitalization)
  Sender: FDA-Public Use
  Company Number: None

PATIENT
  Age: 59 Year
  Sex: Male

DRUGS (2)
  1. CEFEPIME [Suspect]
     Indication: SKIN ULCER
     Dosage: 1 GM IV Q 12 H
     Route: 042
     Dates: start: 20030714, end: 20030717
  2. LOVENOX [Concomitant]

REACTIONS (2)
  - NEPHRITIS ALLERGIC [None]
  - NEPHRITIS INTERSTITIAL [None]
